FAERS Safety Report 18943013 (Version 2)
Quarter: 2021Q1

REPORT INFORMATION
  Report Type: Spontaneous
  Country: US (occurrence: US)
  Receive Date: 20210225
  Receipt Date: 20210303
  Transmission Date: 20210420
  Serious: Yes (Other)
  Sender: FDA-Public Use
  Company Number: US-GLAXOSMITHKLINE-US2021GSK054213

PATIENT
  Sex: Male

DRUGS (16)
  1. RANITIDINE. [Suspect]
     Active Substance: RANITIDINE
     Indication: ABDOMINAL DISCOMFORT
     Dosage: 75 MG OVER THE COUNTER
     Route: 065
     Dates: start: 198901, end: 201909
  2. ZANTAC [Suspect]
     Active Substance: RANITIDINE HYDROCHLORIDE
     Indication: DYSPEPSIA
     Dosage: 75 MG BOTH
     Route: 065
     Dates: start: 198906, end: 201909
  3. ZANTAC [Suspect]
     Active Substance: RANITIDINE HYDROCHLORIDE
     Indication: ABDOMINAL DISCOMFORT
     Dosage: TWO 75 MG PER DOSE|BOTH
     Route: 065
     Dates: start: 198906, end: 201909
  4. ZANTAC [Suspect]
     Active Substance: RANITIDINE HYDROCHLORIDE
     Indication: HIATUS HERNIA
     Dosage: TWO 75 MG PER DOSE|BOTH
     Route: 065
     Dates: start: 198906, end: 201909
  5. RANITIDINE CAPSULE [Suspect]
     Active Substance: RANITIDINE
     Indication: DYSPEPSIA
     Dosage: TWO 75 MG PER DOSE|OVER THE COUNTER
     Route: 065
     Dates: start: 198901, end: 201909
  6. RANITIDINE CAPSULE [Suspect]
     Active Substance: RANITIDINE
     Indication: ABDOMINAL DISCOMFORT
     Dosage: 75 MG BOTH
     Route: 065
     Dates: start: 198906, end: 201909
  7. RANITIDINE CAPSULE [Suspect]
     Active Substance: RANITIDINE
     Indication: HIATUS HERNIA
     Dosage: 75 MG OVER THE COUNTER
     Route: 065
     Dates: start: 198901, end: 201909
  8. RANITIDINE CAPSULE [Suspect]
     Active Substance: RANITIDINE
     Dosage: TWO 75 MG PER DOSE|OVER THE COUNTER
     Route: 065
     Dates: start: 198901, end: 201909
  9. RANITIDINE. [Suspect]
     Active Substance: RANITIDINE
     Indication: DYSPEPSIA
     Dosage: 75 MG OVER THE COUNTER
     Route: 065
     Dates: start: 198901, end: 201909
  10. RANITIDINE. [Suspect]
     Active Substance: RANITIDINE
     Indication: HIATUS HERNIA
     Dosage: TWO 75 MG PER DOSE|OVER THE COUNTER
     Route: 065
     Dates: start: 198901, end: 201909
  11. ZANTAC [Suspect]
     Active Substance: RANITIDINE HYDROCHLORIDE
     Indication: DYSPEPSIA
     Dosage: 75 MG BOTH
     Route: 065
     Dates: start: 198906, end: 201909
  12. ZANTAC [Suspect]
     Active Substance: RANITIDINE HYDROCHLORIDE
     Indication: ABDOMINAL DISCOMFORT
     Dosage: 75 MG BOTH
     Route: 065
     Dates: start: 198906, end: 201909
  13. ZANTAC [Suspect]
     Active Substance: RANITIDINE HYDROCHLORIDE
     Indication: HIATUS HERNIA
     Dosage: TWO 75 MG PER DOSE|BOTH
     Route: 065
     Dates: start: 198906, end: 201909
  14. ZANTAC [Suspect]
     Active Substance: RANITIDINE HYDROCHLORIDE
     Indication: HIATUS HERNIA
  15. ZANTAC [Suspect]
     Active Substance: RANITIDINE HYDROCHLORIDE
     Indication: ABDOMINAL DISCOMFORT
     Dosage: 75 MG BOTH
     Route: 065
     Dates: start: 198906, end: 201909
  16. ZANTAC [Suspect]
     Active Substance: RANITIDINE HYDROCHLORIDE
     Indication: DYSPEPSIA
     Dosage: 75 MG BOTH
     Route: 065
     Dates: start: 198906, end: 201909

REACTIONS (2)
  - Bladder cancer [Unknown]
  - Plasma cell myeloma [Unknown]
